FAERS Safety Report 13725721 (Version 12)
Quarter: 2020Q2

REPORT INFORMATION
  Report Type: Spontaneous
  Country: US (occurrence: US)
  Receive Date: 20170706
  Receipt Date: 20200617
  Transmission Date: 20200713
  Serious: Yes (Death, Other)
  Sender: FDA-Public Use
  Company Number: US-PFIZER INC-2017289424

PATIENT
  Age: 66 Year
  Sex: Female
  Weight: 52.16 kg

DRUGS (13)
  1. IBRANCE [Suspect]
     Active Substance: PALBOCICLIB
     Dosage: 100 MG, UNK (100MG 1 QTY 21)
  2. FASLODEX [Suspect]
     Active Substance: FULVESTRANT
     Indication: BREAST CANCER METASTATIC
     Dosage: UNK, MONTHLY
  3. IBRANCE [Suspect]
     Active Substance: PALBOCICLIB
     Dosage: 100 MG
     Dates: start: 2017, end: 2017
  4. HCTZ [Concomitant]
     Active Substance: HYDROCHLOROTHIAZIDE
     Indication: NEPHROLITHIASIS
     Dosage: 12.5 MG, 1X/DAY
  5. IBRANCE [Suspect]
     Active Substance: PALBOCICLIB
     Dosage: 125 MG, CYCLIC, (QD 21 DAYS ON/ 7DAYS OFF)
     Route: 048
     Dates: start: 20170618, end: 2017
  6. IBRANCE [Suspect]
     Active Substance: PALBOCICLIB
     Dosage: 100 MG, 1X/DAY
     Route: 048
     Dates: start: 2017
  7. POLYMYXIN B SULFATE. [Concomitant]
     Active Substance: POLYMYXIN B SULFATE
     Indication: CATARACT
     Dosage: 1 GTT, 4X/DAY (10ML 1 DROP IN THE RIGHT EYE FOUR TIMES A DAY)
     Dates: start: 20180321
  8. PREDNISOLONE. [Concomitant]
     Active Substance: PREDNISOLONE
     Indication: CATARACT
     Dosage: 1 GTT, 4X/DAY (15ML 1 DROP IN THE RIGHT FOUR TIMES A DAY)
     Dates: start: 20180321
  9. DOXIL [DOXYCYCLINE HYDROCHLORIDE] [Concomitant]
     Active Substance: DOXYCYCLINE HYDROCHLORIDE
     Dosage: UNK
  10. IBRANCE [Suspect]
     Active Substance: PALBOCICLIB
     Dosage: 100 MG, CYCLIC(EVERY DAY FOR 21 DAYS AND THEN 7 DAYS OFF)
     Route: 048
     Dates: start: 2017
  11. POTASSIUM CITRATE. [Concomitant]
     Active Substance: POTASSIUM CITRATE
     Indication: NEPHROLITHIASIS
     Dosage: 10 MEQ, 1X/DAY
     Route: 048
  12. IBRANCE [Suspect]
     Active Substance: PALBOCICLIB
     Indication: BREAST CANCER METASTATIC
     Dosage: 100 MG, CYCLIC[ONCE A DAY FOR 21 DAYS ]
     Route: 048
     Dates: start: 20170301, end: 2017
  13. ILEVRO [Concomitant]
     Active Substance: NEPAFENAC
     Indication: CATARACT
     Dosage: 1 GTT, 1X/DAY (0.8ML 1 DROP IN THE RIGHT EYE ONCE A DAY)
     Dates: start: 20180321

REACTIONS (10)
  - Back pain [Unknown]
  - Epistaxis [Recovered/Resolved]
  - Muscle spasms [Unknown]
  - Impaired healing [Unknown]
  - Diarrhoea [Unknown]
  - Malaise [Unknown]
  - Neoplasm progression [Fatal]
  - Cataract [Recovered/Resolved with Sequelae]
  - Alopecia [Not Recovered/Not Resolved]
  - Fatigue [Unknown]

NARRATIVE: CASE EVENT DATE: 2017
